FAERS Safety Report 14079960 (Version 1)
Quarter: 2017Q4

REPORT INFORMATION
  Report Type: Spontaneous
  Country: ES (occurrence: ES)
  Receive Date: 20171012
  Receipt Date: 20171012
  Transmission Date: 20180321
  Serious: Yes (Other)
  Sender: FDA-Public Use
  Company Number: ES-PFIZER INC-2017439402

PATIENT
  Age: 95 Year
  Sex: Female

DRUGS (2)
  1. ASTUCOR [Suspect]
     Active Substance: AMLODIPINE BESYLATE\ATORVASTATIN CALCIUM
     Dosage: 1 DF, 1X/DAY
     Route: 048
     Dates: start: 201709, end: 201709
  2. METAMIZOL ARISTO [Concomitant]
     Active Substance: METAMIZOLE SODIUM
     Dosage: 575 MG, 1X/DAY
     Route: 048
     Dates: start: 201709, end: 201709

REACTIONS (3)
  - Drug dispensed to wrong patient [Recovered/Resolved]
  - Wrong patient received medication [None]
  - Hypotension [Recovered/Resolved]

NARRATIVE: CASE EVENT DATE: 201709
